FAERS Safety Report 5421717-6 (Version None)
Quarter: 2007Q3

REPORT INFORMATION
  Report Type: 
  Country: None (occurrence: None)
  Receive Date: 20070821
  Receipt Date: 20070809
  Transmission Date: 20080115
  Serious: Yes (Other)
  Sender: FDA-Public Use
  Company Number: ES-PFIZER INC-2007066698

PATIENT
  Age: 40 Year
  Sex: Female

DRUGS (2)
  1. LYRICA [Suspect]
     Indication: NEURALGIA
     Dosage: DAILY DOSE:75MG
     Route: 048
  2. CYMBALTA [Interacting]
     Indication: DEPRESSION

REACTIONS (4)
  - AGGRESSION [None]
  - DRUG INTERACTION [None]
  - PERSONALITY DISORDER [None]
  - TREMOR [None]
